FAERS Safety Report 7292611-3 (Version None)
Quarter: 2011Q1

REPORT INFORMATION
  Report Type: 
  Country: None (occurrence: None)
  Receive Date: 20110215
  Receipt Date: 20110209
  Transmission Date: 20110831
  Serious: No
  Sender: FDA-Public Use
  Company Number: US-JNJFOC-20110203433

PATIENT
  Sex: Female
  Weight: 68.04 kg

DRUGS (7)
  1. FENTANYL-100 [Suspect]
     Indication: PAIN
     Dosage: NDC-0781-7241-55
     Route: 062
  2. SYNTHROID [Concomitant]
     Indication: THYROID DISORDER
     Route: 048
  3. CALCITRIOL [Concomitant]
     Indication: MEDICAL DIET
     Route: 048
  4. CYMBALTA [Concomitant]
     Indication: DEPRESSION
     Route: 048
  5. PREMARIN [Concomitant]
     Indication: MEDICAL DIET
     Route: 048
  6. FENTANYL-100 [Suspect]
     Dosage: NDC-0781-7242-55
     Route: 062
  7. CALCIUM [Concomitant]
     Indication: MEDICAL DIET
     Dosage: 3000-5000 MG
     Route: 048

REACTIONS (3)
  - WRONG TECHNIQUE IN DRUG USAGE PROCESS [None]
  - PRODUCT QUALITY ISSUE [None]
  - DRUG INEFFECTIVE [None]
